FAERS Safety Report 10241760 (Version 1)
Quarter: 2014Q2

REPORT INFORMATION
  Report Type: Spontaneous
  Country: US (occurrence: US)
  Receive Date: 20140617
  Receipt Date: 20140617
  Transmission Date: 20141212
  Serious: Yes (Death, Other)
  Sender: FDA-Public Use
  Company Number: US-BAYER-2014-089818

PATIENT
  Sex: Male

DRUGS (2)
  1. XOFIGO [Suspect]
     Indication: PROSTATE CANCER STAGE IV
     Route: 042
  2. XOFIGO [Suspect]
     Indication: METASTASES TO BONE

REACTIONS (2)
  - Renal failure [None]
  - Death [Fatal]
